FAERS Safety Report 7626576-9 (Version None)
Quarter: 2011Q3

REPORT INFORMATION
  Report Type: 
  Country: None (occurrence: None)
  Receive Date: 20110721
  Receipt Date: 20110713
  Transmission Date: 20111222
  Serious: Yes (Other)
  Sender: FDA-Public Use
  Company Number: JP-GLAXOSMITHKLINE-B0730483A

PATIENT
  Sex: Male

DRUGS (8)
  1. CLONAZEPAM [Suspect]
     Indication: EPILEPSY
     Dosage: 7.5MG PER DAY
     Route: 048
  2. CLONAZEPAM [Concomitant]
     Route: 048
  3. ADJUST A [Concomitant]
     Indication: CONSTIPATION
     Dosage: 240MG PER DAY
     Route: 048
  4. ADEROXAL [Concomitant]
     Indication: EPILEPSY
     Dosage: 17MG PER DAY
     Route: 048
  5. DEPAKENE [Suspect]
     Indication: EPILEPSY
     Dosage: 801MG PER DAY
     Route: 048
  6. VALPROATE SODIUM [Concomitant]
     Route: 048
  7. MAGNESIUM OXIDE [Concomitant]
     Indication: CONSTIPATION
     Dosage: 1.5G PER DAY
     Route: 048
  8. LAMICTAL [Suspect]
     Indication: EPILEPSY
     Dosage: 25MG TWICE PER DAY
     Route: 048
     Dates: start: 20110527

REACTIONS (2)
  - HYPERAMYLASAEMIA [None]
  - DRUG INTERACTION [None]
